FAERS Safety Report 21986125 (Version 1)
Quarter: 2023Q1

REPORT INFORMATION
  Report Type: Spontaneous
  Country: FR (occurrence: FR)
  Receive Date: 20230213
  Receipt Date: 20230213
  Transmission Date: 20230418
  Serious: Yes (Death)
  Sender: FDA-Public Use
  Company Number: FR-Merck Healthcare KGaA-9378366

PATIENT
  Age: 55 Year
  Sex: Male
  Weight: 75 kg

DRUGS (13)
  1. CISPLATIN [Suspect]
     Active Substance: CISPLATIN
     Indication: Squamous cell carcinoma of head and neck
     Dosage: 100 MILLIGRAM/SQ. METER
     Route: 042
     Dates: start: 20210922, end: 20211103
  2. CISPLATIN [Suspect]
     Active Substance: CISPLATIN
     Dosage: 140 MILLIGRAM
     Route: 042
     Dates: start: 20221014
  3. DOCETAXEL [Suspect]
     Active Substance: DOCETAXEL
     Indication: Squamous cell carcinoma of head and neck
     Dosage: 140 MILLIGRAM
     Route: 042
     Dates: start: 20221014
  4. CETUXIMAB [Suspect]
     Active Substance: CETUXIMAB
     Indication: Squamous cell carcinoma of head and neck
     Dosage: 500 MILLIGRAM
     Route: 042
     Dates: start: 20221020
  5. CETUXIMAB [Suspect]
     Active Substance: CETUXIMAB
     Dosage: 800 MILLIGRAM
     Route: 042
     Dates: start: 20221014
  6. FENTANYL [Concomitant]
     Active Substance: FENTANYL
     Indication: Nerve injury
     Dosage: 50 MILLIGRAM
     Route: 048
  7. FENTANYL [Concomitant]
     Active Substance: FENTANYL
     Indication: Pain
  8. FENTANYL [Concomitant]
     Active Substance: FENTANYL
     Indication: Femoral nerve injury
  9. MORPHINE SULFATE [Concomitant]
     Active Substance: MORPHINE SULFATE
     Indication: Pain
     Dosage: UNK
     Route: 048
  10. MORPHINE SULFATE [Concomitant]
     Active Substance: MORPHINE SULFATE
     Indication: Pain
  11. ALPRAZOLAM [Concomitant]
     Active Substance: ALPRAZOLAM
     Indication: Anxiety
     Dosage: UNK
     Route: 048
  12. OMEPRAZOLE [Concomitant]
     Active Substance: OMEPRAZOLE
     Indication: Pain prophylaxis
     Dosage: UNK
     Route: 048
  13. NEURONTIN [Concomitant]
     Active Substance: GABAPENTIN
     Indication: Pain
     Dosage: 200 MILLIGRAM, 0.33 DAYS
     Route: 048

REACTIONS (1)
  - Death [Fatal]

NARRATIVE: CASE EVENT DATE: 20221022
